FAERS Safety Report 5527364-X (Version None)
Quarter: 2007Q4

REPORT INFORMATION
  Report Type: 
  Country: None (occurrence: None)
  Receive Date: 20071123
  Receipt Date: 20071109
  Transmission Date: 20080405
  Serious: Yes (Other)
  Sender: FDA-Public Use
  Company Number: 2007PV033451

PATIENT
  Age: 67 Year
  Sex: Male
  Weight: 83.4619 kg

DRUGS (9)
  1. SYMLIN [Suspect]
     Indication: TYPE 2 DIABETES MELLITUS
     Dosage: 30 MCG; TID;SC; 45 MCG; TID; SC;  15 MCG; TID; SC
     Route: 058
     Dates: start: 20070601, end: 20070601
  2. SYMLIN [Suspect]
     Indication: TYPE 2 DIABETES MELLITUS
     Dosage: 30 MCG; TID;SC; 45 MCG; TID; SC;  15 MCG; TID; SC
     Route: 058
     Dates: start: 20070601, end: 20070601
  3. SYMLIN [Suspect]
     Indication: TYPE 2 DIABETES MELLITUS
     Dosage: 30 MCG; TID;SC; 45 MCG; TID; SC;  15 MCG; TID; SC
     Route: 058
     Dates: start: 20070101, end: 20070701
  4. SYMLIN [Suspect]
     Indication: TYPE 2 DIABETES MELLITUS
     Dosage: 30 MCG; TID;SC; 45 MCG; TID; SC;  15 MCG; TID; SC
     Route: 058
     Dates: start: 20070609
  5. HUMALOG [Concomitant]
  6. LANTUS [Concomitant]
  7. ACTOS [Concomitant]
  8. QUINAPRIL HCL [Concomitant]
  9. HYDROCHLOROTHIAZIDE [Concomitant]

REACTIONS (4)
  - EYE IRRITATION [None]
  - FEELING ABNORMAL [None]
  - NAUSEA [None]
  - RETINAL OPERATION [None]
